FAERS Safety Report 8836961 (Version 1)
Quarter: 2012Q4

REPORT INFORMATION
  Report Type: 
  Country: US (occurrence: US)
  Receive Date: 20121012
  Receipt Date: 20121012
  Transmission Date: 20130627
  Serious: Yes (Death, Hospitalization)
  Sender: FDA-Public Use
  Company Number: US-ROXANE LABORATORIES, INC.-2012-RO-01981RO

PATIENT
  Age: 87 Year
  Sex: Male

DRUGS (9)
  1. OXCARBAZEPINE [Suspect]
     Indication: DIABETIC NEUROPATHY
     Dosage: 150 mg
  2. SERTRALINE [Suspect]
     Dosage: 50 mg
     Route: 048
  3. FUROSEMIDE [Suspect]
     Dosage: 20 mg
     Route: 048
  4. ASPIRIN [Suspect]
     Dosage: 81 mg
     Route: 048
  5. ATENOLOL [Suspect]
     Dosage: 100 mg
     Route: 048
  6. IPRATROPIUM BROMIDE/ALBUTEROL SULFATE [Suspect]
     Route: 055
  7. GABAPENTIN [Suspect]
     Dosage: 1800 mg
  8. GLIPIZIDE [Suspect]
     Dosage: 5 mg
     Route: 048
  9. LEVOFLOXACIN [Suspect]
     Indication: CELLULITIS
     Dosage: 500 mg
     Route: 048

REACTIONS (2)
  - Serotonin syndrome [Fatal]
  - Cellulitis [Unknown]
